APPROVED DRUG PRODUCT: NADOLOL
Active Ingredient: NADOLOL
Strength: 160MG
Dosage Form/Route: TABLET;ORAL
Application: A074255 | Product #003
Applicant: HERITAGE PHARMA LABS INC
Approved: Jan 24, 1996 | RLD: No | RS: No | Type: DISCN